FAERS Safety Report 9216597 (Version 1)
Quarter: 2013Q2

REPORT INFORMATION
  Report Type: Spontaneous
  Country: US (occurrence: None)
  Receive Date: 20130403
  Receipt Date: 20130403
  Transmission Date: 20140414
  Serious: Yes (Hospitalization)
  Sender: FDA-Public Use
  Company Number: TPA2013A02462

PATIENT
  Age: 9 Decade
  Sex: Female

DRUGS (1)
  1. EDARBYCLOR [Suspect]

REACTIONS (2)
  - Loss of consciousness [None]
  - Renal failure [None]
